FAERS Safety Report 21392023 (Version 2)
Quarter: 2022Q4

REPORT INFORMATION
  Report Type: Spontaneous
  Country: IT (occurrence: IT)
  Receive Date: 20220929
  Receipt Date: 20221004
  Transmission Date: 20230113
  Serious: Yes (Life-Threatening, Disabling, Other)
  Sender: FDA-Public Use
  Company Number: None

PATIENT
  Age: 26 Year
  Sex: Female
  Weight: 68 kg

DRUGS (1)
  1. CIPROFLOXACIN [Suspect]
     Active Substance: CIPROFLOXACIN
     Indication: Cystitis
     Dosage: UNK
     Route: 048
     Dates: start: 2005, end: 2005

REACTIONS (8)
  - Tendonitis [Not Recovered/Not Resolved]
  - Arthralgia [Recovering/Resolving]
  - Gait disturbance [Recovering/Resolving]
  - Myalgia [Recovering/Resolving]
  - Paraesthesia [Recovering/Resolving]
  - Vitreous floaters [Not Recovered/Not Resolved]
  - Hypoglycaemia [Unknown]
  - Pelvic floor dysfunction [Not Recovered/Not Resolved]

NARRATIVE: CASE EVENT DATE: 20060101
